FAERS Safety Report 8935410 (Version 1)
Quarter: 2012Q4

REPORT INFORMATION
  Report Type: Spontaneous
  Country: TR (occurrence: None)
  Receive Date: 20121119
  Receipt Date: 20121119
  Transmission Date: 20130627
  Serious: Yes (Other)
  Sender: FDA-Public Use
  Company Number: ACO_32116_2012

PATIENT
  Age: 54 Year
  Sex: Female

DRUGS (1)
  1. FAMPYRA [Suspect]
     Indication: GAIT DISTURBANCE
     Route: 048
     Dates: start: 20120510, end: 20120514

REACTIONS (5)
  - Hypersensitivity [None]
  - Rash [None]
  - Oedema [None]
  - Asthenia [None]
  - Hypotension [None]
